FAERS Safety Report 18306435 (Version 1)
Quarter: 2020Q3

REPORT INFORMATION
  Report Type: Other
  Country: IN (occurrence: IN)
  Receive Date: 20200924
  Receipt Date: 20200924
  Transmission Date: 20201103
  Serious: Yes (Other)
  Sender: FDA-Public Use
  Company Number: IN-INNOGENIX, LLC-2091102

PATIENT
  Age: 20 Year
  Sex: Male

DRUGS (1)
  1. METRONIDAZOLE. [Suspect]
     Active Substance: METRONIDAZOLE
     Indication: HEPATIC AMOEBIASIS
     Route: 065

REACTIONS (3)
  - Mental status changes [Recovered/Resolved]
  - Toxicity to various agents [Unknown]
  - Seizure [Recovered/Resolved]
